FAERS Safety Report 18122927 (Version 2)
Quarter: 2024Q3

REPORT INFORMATION
  Report Type: Spontaneous
  Country: US (occurrence: US)
  Receive Date: 20200807
  Receipt Date: 20240812
  Transmission Date: 20241016
  Serious: Yes (Life-Threatening, Hospitalization, Other)
  Sender: ACCORD
  Company Number: US-MLMSERVICE-20200722-2392876-1

PATIENT
  Age: 25 Year
  Sex: Female

DRUGS (3)
  1. TRAZODONE HYDROCHLORIDE [Suspect]
     Active Substance: TRAZODONE HYDROCHLORIDE
     Dosage: 35 MG/KG
     Route: 048
  2. DILTIAZEM [Suspect]
     Active Substance: DILTIAZEM
     Dosage: 180 MG (186 MG/KG)
     Route: 048
  3. PROMETHAZINE [Suspect]
     Active Substance: PROMETHAZINE HYDROCHLORIDE
     Dosage: 17 MG/KG
     Route: 048

REACTIONS (10)
  - Toxicity to various agents [Unknown]
  - Lactic acidosis [Recovered/Resolved]
  - Electrocardiogram QT prolonged [Recovered/Resolved]
  - Multiple organ dysfunction syndrome [Recovered/Resolved]
  - Sinus tachycardia [Recovered/Resolved]
  - Intentional overdose [Unknown]
  - Hypotension [Recovered/Resolved]
  - Shock [Recovered/Resolved]
  - Suicide attempt [Unknown]
  - Vasoplegia syndrome [Recovered/Resolved]
